FAERS Safety Report 4538580-8 (Version None)
Quarter: 2004Q4

REPORT INFORMATION
  Report Type: 
  Country: None (occurrence: None)
  Receive Date: 20041222
  Receipt Date: 20041214
  Transmission Date: 20050328
  Serious: Yes (Death)
  Sender: FDA-Public Use
  Company Number: D01200405351

PATIENT
  Age: 69 Year
  Sex: Male

DRUGS (5)
  1. OXALIPLATIN - SOLUTION - 85 MG/M2 [Suspect]
     Dosage: 85 MG/M2 Q2WM INTRAVENOUS NOS
     Route: 042
     Dates: start: 20050615, end: 20040615
  2. FLUOROURACIL [Suspect]
     Dosage: 400 MG/M2 AS IV BOLUS THEN 600 MG.M2 AS 22 HOURS CONTINUOUS INFUSION D1-D2 Q2W
     Route: 042
     Dates: start: 20040615, end: 20040617
  3. SR57746 OR PLACEBO - CAPSULE - 1 MG [Suspect]
     Indication: CHEMOTHERAPY NEUROTOXICITY ATTENUATION
     Dosage: 1 MG QD ORAL
     Route: 048
     Dates: start: 20031125, end: 20040629
  4. SR57746 OR PLACEBO - CAPSULE - 1 MG [Suspect]
     Indication: COLORECTAL CANCER METASTATIC
     Dosage: 1 MG QD ORAL
     Route: 048
     Dates: start: 20031125, end: 20040629
  5. LEUCOVORIN CALCIUM [Suspect]
     Dosage: 200 MG/M2 AS 2 H OURS INFUSION ON D1-D2 Q2W INTRAVENOUS NOS
     Route: 042
     Dates: start: 20040615, end: 20040616

REACTIONS (6)
  - ADHESION [None]
  - BRONCHOPNEUMONIA [None]
  - GENERAL PHYSICAL HEALTH DETERIORATION [None]
  - METASTASES TO LUNG [None]
  - PERITONEAL ADHESIONS [None]
  - PLEURAL DISORDER [None]
